FAERS Safety Report 18795567 (Version 1)
Quarter: 2021Q1

REPORT INFORMATION
  Report Type: Spontaneous
  Country: CA (occurrence: CA)
  Receive Date: 20210127
  Receipt Date: 20210127
  Transmission Date: 20210419
  Serious: Yes (Hospitalization)
  Sender: FDA-Public Use
  Company Number: CA-ABBVIE-21K-028-3745896-00

PATIENT
  Sex: Male

DRUGS (2)
  1. SKYRIZI [Suspect]
     Active Substance: RISANKIZUMAB-RZAA
     Indication: PRODUCT USED FOR UNKNOWN INDICATION
     Route: 058
     Dates: start: 202002
  2. PREDNISONE. [Suspect]
     Active Substance: PREDNISONE
     Indication: PRODUCT USED FOR UNKNOWN INDICATION
     Route: 065

REACTIONS (12)
  - Psoriasis [Unknown]
  - Septic shock [Unknown]
  - Arthralgia [Unknown]
  - Drug ineffective [Unknown]
  - Condition aggravated [Unknown]
  - Eye injury [Unknown]
  - Eczema [Unknown]
  - Skin disorder [Unknown]
  - Blood albumin abnormal [Unknown]
  - Herpes ophthalmic [Unknown]
  - Muscle atrophy [Unknown]
  - Weight increased [Unknown]
